FAERS Safety Report 12623498 (Version 2)
Quarter: 2016Q3

REPORT INFORMATION
  Report Type: Report from Study
  Country: US (occurrence: US)
  Receive Date: 20160804
  Receipt Date: 20160819
  Transmission Date: 20161109
  Serious: Yes (Hospitalization, Other)
  Sender: FDA-Public Use
  Company Number: US-ABBVIE-16P-163-1692724-00

PATIENT
  Sex: Female

DRUGS (1)
  1. SYNTHROID [Suspect]
     Active Substance: LEVOTHYROXINE SODIUM
     Indication: HYPOTHYROIDISM
     Route: 048
     Dates: start: 201604

REACTIONS (12)
  - Gastrooesophageal reflux disease [Recovering/Resolving]
  - Syncope [Unknown]
  - Neuropathy peripheral [Not Recovered/Not Resolved]
  - Depression [Unknown]
  - Chest pain [Recovering/Resolving]
  - Adjustment disorder with depressed mood [Unknown]
  - Myalgia [Unknown]
  - Electrocardiogram abnormal [Unknown]
  - Rhinitis allergic [Unknown]
  - Depression [Not Recovered/Not Resolved]
  - Dizziness [Unknown]
  - Asthma [Recovering/Resolving]

NARRATIVE: CASE EVENT DATE: 2016
